FAERS Safety Report 12944510 (Version 1)
Quarter: 2016Q4

REPORT INFORMATION
  Report Type: Spontaneous
  Country: US (occurrence: US)
  Receive Date: 20161115
  Receipt Date: 20161115
  Transmission Date: 20170207
  Serious: Yes (Disabling)
  Sender: FDA-Public Use
  Company Number: None

PATIENT
  Age: 28 Year
  Sex: Female
  Weight: 68.1 kg

DRUGS (2)
  1. VITAMIN C TABLETS [Concomitant]
  2. PARAGARD T 380A [Suspect]
     Active Substance: COPPER

REACTIONS (12)
  - Panic attack [None]
  - Headache [None]
  - Anger [None]
  - Crying [None]
  - Feeling abnormal [None]
  - Hand deformity [None]
  - Dizziness [None]
  - Alopecia [None]
  - Affective disorder [None]
  - Rash [None]
  - Blood pressure increased [None]
  - Fatigue [None]

NARRATIVE: CASE EVENT DATE: 20161001
